FAERS Safety Report 15889371 (Version 3)
Quarter: 2019Q1

REPORT INFORMATION
  Report Type: Report from Study
  Country: GB (occurrence: GB)
  Receive Date: 20190130
  Receipt Date: 20190221
  Transmission Date: 20190417
  Serious: Yes (Other)
  Sender: FDA-Public Use
  Company Number: GB-PFIZER INC-2018446015

PATIENT
  Age: 76 Year
  Sex: Male
  Weight: 64.3 kg

DRUGS (11)
  1. INLYTA [Suspect]
     Active Substance: AXITINIB
     Indication: RENAL CELL CARCINOMA
     Dosage: UNK, TWICE DAILY CONTINUOUS
     Route: 048
     Dates: start: 20170602, end: 20181026
  2. CODINE LINCTUS [Concomitant]
     Dosage: UNK
  3. LAXIDO [Concomitant]
     Active Substance: POLYETHYLENE GLYCOL 3350\POTASSIUM CHLORIDE\SODIUM BICARBONATE\SODIUM CHLORIDE
     Dosage: UNK
  4. ALLOPURINOL. [Concomitant]
     Active Substance: ALLOPURINOL
     Dosage: UNK
  5. AMLODIPINE [Concomitant]
     Active Substance: AMLODIPINE BESYLATE
     Dosage: UNK
  6. FORTISIP [Concomitant]
     Active Substance: CARBOHYDRATES\FATTY ACIDS\MINERALS\PROTEIN\VITAMINS
  7. AVELUMAB [Suspect]
     Active Substance: AVELUMAB
     Indication: RENAL CELL CARCINOMA
     Dosage: UNK UNK, EVERY 2 WEEKS
     Route: 042
     Dates: start: 20170602
  8. STATIN [ATORVASTATIN CALCIUM] [Concomitant]
     Dosage: UNK
  9. SALBUTAMOL [Concomitant]
     Active Substance: ALBUTEROL
     Dosage: UNK
     Route: 065
  10. APIXABAN [Suspect]
     Active Substance: APIXABAN
     Indication: PULMONARY EMBOLISM
     Dosage: 2.5 MG, BID
     Route: 048
     Dates: start: 20180808, end: 20181026
  11. ASPIRIN. [Suspect]
     Active Substance: ASPIRIN
     Indication: DISEASE RISK FACTOR
     Dosage: 75 MG, 1X/DAY
     Route: 048
     Dates: start: 20180404, end: 20181026

REACTIONS (1)
  - Cerebral haematoma [Recovering/Resolving]
